FAERS Safety Report 6672562-5 (Version None)
Quarter: 2010Q2

REPORT INFORMATION
  Report Type: 
  Country: None (occurrence: None)
  Receive Date: 20100408
  Receipt Date: 20100401
  Transmission Date: 20101027
  Serious: Yes (Hospitalization)
  Sender: FDA-Public Use
  Company Number: JP-BRISTOL-MYERS SQUIBB COMPANY-14760805

PATIENT
  Age: 36 Year
  Weight: 44 kg

DRUGS (22)
  1. BRIPLATIN [Suspect]
     Indication: CERVIX CARCINOMA
     Dosage: 1ST CYCLE:28JULY09 2ND CYCLE:18AUG09
     Route: 042
     Dates: start: 20090818, end: 20090818
  2. OXYCONTIN [Suspect]
     Indication: PERIPHERAL SENSORY NEUROPATHY
     Route: 048
     Dates: start: 20090817
  3. SODIUM PICOSULFATE [Suspect]
     Indication: CONSTIPATION PROPHYLAXIS
     Route: 048
     Dates: start: 20090824
  4. OXINORM [Suspect]
     Indication: PERIPHERAL SENSORY NEUROPATHY
     Route: 048
     Dates: start: 20090920
  5. TEPRENONE [Concomitant]
     Indication: PROPHYLAXIS
     Route: 048
     Dates: start: 20090722
  6. LAC-B [Concomitant]
     Indication: PROPHYLAXIS
     Route: 048
     Dates: start: 20090722
  7. EVAMYL [Concomitant]
     Indication: RELAXATION THERAPY
     Route: 048
     Dates: start: 20090724
  8. DAI-KENCHU-TO [Concomitant]
     Indication: PROPHYLAXIS
     Dosage: DAI-KENCHU-TO EXTRACT
     Route: 048
     Dates: start: 20090722
  9. PRIMPERAN INJ [Concomitant]
     Indication: PROPHYLAXIS OF NAUSEA AND VOMITING
     Dosage: PRIMPERAN TABLETS 5
     Route: 048
     Dates: start: 20090730, end: 20090824
  10. RAMELTEON [Concomitant]
     Indication: NAUSEA
     Dosage: NASEA OD TABS
     Route: 048
     Dates: start: 20090809
  11. LANSOPRAZOLE [Concomitant]
     Indication: HIATUS HERNIA
     Dosage: TAKEPRON OD TABS
     Route: 048
     Dates: start: 20090806
  12. IBRUPROFEN [Concomitant]
     Indication: PERIPHERAL SENSORY NEUROPATHY
     Dosage: TABS 100
     Route: 048
     Dates: start: 20090804
  13. SEROTONE [Concomitant]
     Route: 041
     Dates: start: 20090818, end: 20090818
  14. DECADRON [Concomitant]
     Route: 041
     Dates: start: 20090818, end: 20090820
  15. NORMAL SALINE [Concomitant]
     Route: 041
     Dates: start: 20090818, end: 20090820
  16. SALINE [Concomitant]
     Dosage: PHYSIOLOGIC SALINE
     Route: 041
     Dates: start: 20090818, end: 20090818
  17. SOLULACT [Concomitant]
     Dosage: SOLULACT TMR
     Route: 041
     Dates: start: 20090818, end: 20090818
  18. PHYSIO 140 [Concomitant]
     Route: 041
     Dates: start: 20090819, end: 20090820
  19. EBRANTIL [Concomitant]
     Indication: URINARY RETENTION
     Dosage: CAPS
     Route: 048
     Dates: start: 20090822
  20. FLOMAX [Concomitant]
     Indication: URINARY RETENTION
     Route: 048
     Dates: start: 20090822, end: 20090824
  21. MAGLAX [Concomitant]
     Indication: CONSTIPATION
     Route: 048
     Dates: start: 20090819
  22. FAMOTIDINE [Concomitant]
     Route: 041
     Dates: start: 20090918

REACTIONS (1)
  - ILEUS [None]
